FAERS Safety Report 9950333 (Version 2)
Quarter: 2014Q1

REPORT INFORMATION
  Report Type: Report from Study
  Country: US (occurrence: US)
  Receive Date: 20140304
  Receipt Date: 20140304
  Transmission Date: 20141002
  Serious: No
  Sender: FDA-Public Use
  Company Number: US-ABBVIE-13P-163-1044317-00

PATIENT
  Age: 68 Year
  Sex: Male

DRUGS (10)
  1. HUMIRA [Suspect]
     Indication: RHEUMATOID ARTHRITIS
  2. HUMIRA [Suspect]
     Indication: CROHN^S DISEASE
  3. GABAPENTIN [Concomitant]
     Indication: CROHN^S DISEASE
  4. LIPITOR [Concomitant]
     Indication: BLOOD CHOLESTEROL INCREASED
     Dosage: DAILY
  5. BENICAR [Concomitant]
     Indication: HYPERTENSION
     Dosage: DAILY
  6. CELEBREX [Concomitant]
     Indication: ARTHRALGIA
  7. FUROSEMIDE [Concomitant]
     Indication: FLUID RETENTION
     Dosage: DAILY
  8. TRAMADOL [Concomitant]
     Indication: PAIN
     Dosage: DAILY
  9. AMBIEN [Concomitant]
     Indication: INSOMNIA
     Dosage: AT NIGHT
  10. ENTOCORT [Concomitant]
     Indication: CROHN^S DISEASE

REACTIONS (7)
  - Incorrect dose administered [Recovered/Resolved]
  - Device malfunction [Recovered/Resolved]
  - Arthralgia [Recovering/Resolving]
  - Injection site haemorrhage [Recovered/Resolved]
  - Injection site pain [Recovered/Resolved]
  - Injection site vesicles [Recovered/Resolved]
  - Injection site haemorrhage [Recovered/Resolved]
